FAERS Safety Report 6126039-6 (Version None)
Quarter: 2009Q1

REPORT INFORMATION
  Report Type: 
  Country: None (occurrence: None)
  Receive Date: 20090320
  Receipt Date: 20090318
  Transmission Date: 20090719
  Serious: Yes (Other)
  Sender: FDA-Public Use
  Company Number: RU-ROCHE-622280

PATIENT
  Age: 48 Year
  Sex: Female

DRUGS (3)
  1. XENICAL [Suspect]
     Indication: WEIGHT CONTROL
     Route: 048
     Dates: start: 20070301, end: 20070315
  2. CHONDROITIN SULFATE/GLUCOSAMINE SULFATE [Concomitant]
     Dates: end: 20090201
  3. CHONDROITIN SULFATE/GLUCOSAMINE SULFATE [Concomitant]
     Dosage: REPORTED DRUG: CHONDROITIN SULFATE/GLUCOSAMINE SULFATE/THERAFLEX.

REACTIONS (1)
  - RECTAL HAEMORRHAGE [None]
